FAERS Safety Report 24231061 (Version 1)
Quarter: 2024Q3

REPORT INFORMATION
  Report Type: Spontaneous
  Country: CA (occurrence: CA)
  Receive Date: 20240821
  Receipt Date: 20240821
  Transmission Date: 20241017
  Serious: No
  Sender: TOLMAR
  Company Number: CA-TOLMAR, INC.-24CA049654

PATIENT
  Age: 10 Year
  Sex: Female
  Weight: 68 kg

DRUGS (2)
  1. ELIGARD [Suspect]
     Active Substance: LEUPROLIDE ACETATE
     Indication: Precocious puberty
     Dosage: 45 MILLIGRAM, Q 6 MONTH
     Dates: start: 20240506
  2. ELIGARD [Suspect]
     Active Substance: LEUPROLIDE ACETATE
     Indication: Precocious puberty
     Dosage: UNK

REACTIONS (4)
  - Intermenstrual bleeding [Recovered/Resolved]
  - Injection site discharge [Unknown]
  - Product administration error [Unknown]
  - Device leakage [Unknown]

NARRATIVE: CASE EVENT DATE: 20240506
